FAERS Safety Report 13986475 (Version 1)
Quarter: 2017Q3

REPORT INFORMATION
  Report Type: Report from Study
  Country: US (occurrence: BR)
  Receive Date: 20170919
  Receipt Date: 20170919
  Transmission Date: 20171128
  Serious: Yes (Death)
  Sender: FDA-Public Use
  Company Number: US-SUNOVION-2017SUN004066

PATIENT
  Sex: Female
  Weight: 61 kg

DRUGS (1)
  1. INDACATEROL AND GLYCOPYRROLATE [Suspect]
     Active Substance: GLYCOPYRROLATE\INDACATEROL MALEATE
     Indication: CHRONIC OBSTRUCTIVE PULMONARY DISEASE
     Dosage: 1 DF(50 UG OF GLYCOPYRRONIUM BROMIDE/110 UG OF INDACATEROL), QD
     Route: 055
     Dates: start: 20170809

REACTIONS (2)
  - Dyspnoea [Fatal]
  - Pulmonary mass [Fatal]
